FAERS Safety Report 9235761 (Version 2)
Quarter: 2014Q3

REPORT INFORMATION
  Report Type: Spontaneous
  Country: US (occurrence: US)
  Receive Date: 20130417
  Receipt Date: 20140801
  Transmission Date: 20150326
  Serious: Yes (Other)
  Sender: FDA-Public Use
  Company Number: PHEH2013US003933

PATIENT
  Sex: Male

DRUGS (12)
  1. GLEEVEC [Suspect]
     Active Substance: IMATINIB MESYLATE
     Dosage: 400 MG, QD
     Route: 048
  2. TOPROL XL [Concomitant]
     Active Substance: METOPROLOL SUCCINATE
     Dosage: UNK UKN, UNK
  3. ASPIRIN. [Concomitant]
     Active Substance: ASPIRIN
     Dosage: 81 MG
  4. GLEEVEC [Suspect]
     Active Substance: IMATINIB MESYLATE
     Dosage: 600 MG, QD
     Route: 048
  5. BUSPIRONE [Concomitant]
     Active Substance: BUSPIRONE HYDROCHLORIDE
     Dosage: 10 MG, TID
  6. FISH OIL [Concomitant]
     Active Substance: FISH OIL
     Dosage: UNK UKN, UNK
  7. METOPROLOL [Concomitant]
     Active Substance: METOPROLOL
     Dosage: UNK UKN, UNK
  8. FLOMAX//TAMSULOSIN HYDROCHLORIDE [Concomitant]
     Dosage: UNK UKN, UNK
  9. STATIN//ATORVASTATIN CALCIUM [Concomitant]
     Dosage: UNK UKN, UNK
  10. TRAZODONE [Concomitant]
     Active Substance: TRAZODONE HYDROCHLORIDE
     Dosage: UNK UKN, UNK
  11. LOPID [Concomitant]
     Active Substance: GEMFIBROZIL
     Dosage: UNK UKN, UNK
  12. LISINOPRIL. [Concomitant]
     Active Substance: LISINOPRIL
     Dosage: 10 MG

REACTIONS (8)
  - Heart rate decreased [Unknown]
  - Bone density abnormal [Unknown]
  - Bone disorder [Unknown]
  - Loss of consciousness [Unknown]
  - Arthralgia [Unknown]
  - Tenderness [Unknown]
  - Pain in extremity [Unknown]
  - No therapeutic response [Unknown]
